FAERS Safety Report 8388024-3 (Version None)
Quarter: 2012Q2

REPORT INFORMATION
  Report Type: 
  Country: None (occurrence: None)
  Receive Date: 20120525
  Receipt Date: 20071126
  Transmission Date: 20120825
  Serious: Yes (Death, Hospitalization, Other)
  Sender: FDA-Public Use
  Company Number: US-ACTELION-A-US2007-18795

PATIENT

DRUGS (8)
  1. WARFARIN SODIUM [Concomitant]
  2. OXYGEN [Concomitant]
  3. DIGOXIN [Concomitant]
  4. PRILOSEC [Concomitant]
  5. TRACLEER [Suspect]
     Dosage: 62.5 MG, BID
     Route: 048
     Dates: start: 20070305, end: 20070408
  6. TRACLEER [Suspect]
     Indication: PULMONARY ARTERIAL HYPERTENSION
     Dosage: 125 MG, BID
     Route: 048
     Dates: start: 20070409, end: 20070101
  7. SERTRALINE HYDROCHLORIDE [Concomitant]
  8. CALCIUM CHANNEL BLOCKERS [Concomitant]

REACTIONS (6)
  - PULMONARY ARTERIAL HYPERTENSION [None]
  - RIGHT VENTRICULAR FAILURE [None]
  - AUTOIMMUNE DISORDER [None]
  - ACUTE HEPATIC FAILURE [None]
  - AUTOIMMUNE HEPATITIS [None]
  - LIVER FUNCTION TEST ABNORMAL [None]
